FAERS Safety Report 7357798-2 (Version None)
Quarter: 2011Q1

REPORT INFORMATION
  Report Type: 
  Country: None (occurrence: None)
  Receive Date: 20110317
  Receipt Date: 20110310
  Transmission Date: 20110831
  Serious: Yes (Other)
  Sender: FDA-Public Use
  Company Number: CA-US-EMD SERONO, INC.-230015K08CAN

PATIENT
  Sex: Female

DRUGS (8)
  1. REBIF [Suspect]
     Indication: MULTIPLE SCLEROSIS
     Dates: start: 20001130
  2. IMOVANE [Concomitant]
  3. VITAMIN D [Concomitant]
  4. TYLENOL-500 [Concomitant]
  5. ADVIL LIQUI-GELS [Concomitant]
  6. REBIF [Suspect]
     Indication: RELAPSING-REMITTING MULTIPLE SCLEROSIS
  7. MULTI-VITAMINS [Concomitant]
  8. CALCIUM [Concomitant]

REACTIONS (12)
  - PARAESTHESIA [None]
  - INFLUENZA LIKE ILLNESS [None]
  - DEPRESSION [None]
  - SLEEP DISORDER [None]
  - INJECTION SITE INFLAMMATION [None]
  - INJECTION SITE ERYTHEMA [None]
  - PNEUMONIA [None]
  - FEELING HOT [None]
  - INJECTION SITE HAEMATOMA [None]
  - ORAL HERPES [None]
  - RHINORRHOEA [None]
  - FATIGUE [None]
